FAERS Safety Report 12114590 (Version 2)
Quarter: 2024Q4

REPORT INFORMATION
  Report Type: Spontaneous
  Country: NO (occurrence: NO)
  Receive Date: 20160225
  Receipt Date: 20241227
  Transmission Date: 20250114
  Serious: Yes (Other)
  Sender: BRISTOL-MYERS SQUIBB COMPANY
  Company Number: NO-BRISTOL-MYERS SQUIBB COMPANY-BMS-2016-014430

PATIENT

DRUGS (3)
  1. SPRYCEL [Suspect]
     Active Substance: DASATINIB
     Indication: Chronic myeloid leukaemia
     Dosage: 100 MG, QD
  2. PEGINTRON [Suspect]
     Active Substance: PEGINTERFERON ALFA-2B
     Indication: Chronic myeloid leukaemia
     Dosage: 15 G, QWK
     Route: 058
  3. PEGINTRON [Suspect]
     Active Substance: PEGINTERFERON ALFA-2B
     Dosage: 25 G, QWK
     Route: 058

REACTIONS (1)
  - Lipase increased [Unknown]
